FAERS Safety Report 16427776 (Version 1)
Quarter: 2019Q2

REPORT INFORMATION
  Report Type: Spontaneous
  Country: US (occurrence: US)
  Receive Date: 20190613
  Receipt Date: 20190613
  Transmission Date: 20190711
  Serious: Yes (Other)
  Sender: FDA-Public Use
  Company Number: PHHY2019US088405

PATIENT
  Age: 48 Year
  Sex: Female

DRUGS (19)
  1. MEDROL [Suspect]
     Active Substance: METHYLPREDNISOLONE
     Dosage: UNK, LESSER DOSE
     Route: 048
  2. PHENERGAN [Concomitant]
     Active Substance: PROMETHAZINE HYDROCHLORIDE
     Indication: NAUSEA
  3. PROAIR HFA [Concomitant]
     Active Substance: ALBUTEROL SULFATE
     Indication: WHEEZING
     Dosage: UNK UNK, Q4H (2 PUFFS)
     Route: 065
  4. MEDROL [Suspect]
     Active Substance: METHYLPREDNISOLONE
     Indication: OPTIC NEURITIS
     Dosage: 4 MG, UNK
     Route: 048
  5. DELTASONE [Suspect]
     Active Substance: PREDNISONE
     Dosage: UNK, LESSER DOSE
     Route: 048
  6. DYMISTA [Concomitant]
     Active Substance: AZELASTINE HYDROCHLORIDE\FLUTICASONE PROPIONATE
     Indication: PRODUCT USED FOR UNKNOWN INDICATION
     Dosage: 1 DF, BID (SPRAY BY BOTH NOSTRILS ROUTE TWO TIMES A DAY)
     Route: 065
  7. VENTOLIN HFA [Concomitant]
     Active Substance: ALBUTEROL SULFATE
     Indication: WHEEZING
     Dosage: UNK UNK, Q4H (2 PUFFS)
     Route: 065
  8. BENTYL [Concomitant]
     Active Substance: DICYCLOMINE HYDROCHLORIDE
     Indication: PRODUCT USED FOR UNKNOWN INDICATION
     Dosage: 20 MG, Q6H
     Route: 048
  9. IMITREX [Concomitant]
     Active Substance: SUMATRIPTAN SUCCINATE
     Indication: MIGRAINE
     Dosage: 100 MG, UNK (AS NECESSARY)
     Route: 048
  10. PREDNISONE. [Suspect]
     Active Substance: PREDNISONE
     Dosage: UNK, LESSER DOSE
     Route: 048
  11. PRINIVIL [Concomitant]
     Active Substance: LISINOPRIL
     Indication: HYPERTENSION
     Route: 065
  12. PROVENTIL HFA [Concomitant]
     Active Substance: ALBUTEROL SULFATE
     Indication: WHEEZING
     Dosage: UNK UNK, Q4H (2 PUFF)
     Route: 065
  13. AIMOVIG [Suspect]
     Active Substance: ERENUMAB-AOOE
     Indication: PRODUCT USED FOR UNKNOWN INDICATION
     Dosage: 70 MG, QMO
     Route: 058
     Dates: start: 20190405
  14. PREDNISONE. [Suspect]
     Active Substance: PREDNISONE
     Indication: OPTIC NEURITIS
     Dosage: 1000 MG, UNK
     Route: 042
  15. DELTASONE [Suspect]
     Active Substance: PREDNISONE
     Indication: OPTIC NEURITIS
     Dosage: UNK, 40 MGX3 DAYS, THEN 30 MGX3 DAYS AND 20 MGX3 DAYS
     Route: 048
  16. PHENERGAN [Concomitant]
     Active Substance: PROMETHAZINE HYDROCHLORIDE
     Indication: GASTROINTESTINAL DISORDER
     Dosage: 25 MG, UNK
     Route: 065
  17. TYLENOL [Concomitant]
     Active Substance: ACETAMINOPHEN
     Indication: PRODUCT USED FOR UNKNOWN INDICATION
     Dosage: UNK
     Route: 065
  18. PANTOPRAZOLE [Concomitant]
     Active Substance: PANTOPRAZOLE
     Indication: PRODUCT USED FOR UNKNOWN INDICATION
     Dosage: 40 MG, UNK
     Route: 065
  19. NITROSTAT [Concomitant]
     Active Substance: NITROGLYCERIN
     Indication: CHEST PAIN
     Dosage: 0.4 MG, UNK ( AS NECESSARY, EVERY 5 MINUTES)
     Route: 060

REACTIONS (26)
  - Hyperhidrosis [Recovering/Resolving]
  - Feeling abnormal [Recovering/Resolving]
  - Vision blurred [Recovering/Resolving]
  - Memory impairment [Recovering/Resolving]
  - Fear of death [Recovering/Resolving]
  - Eye pain [Recovering/Resolving]
  - Hypersensitivity [Recovering/Resolving]
  - Asthenia [Recovering/Resolving]
  - Optic neuritis [Recovering/Resolving]
  - Loss of consciousness [Recovering/Resolving]
  - Dry mouth [Recovering/Resolving]
  - Fall [Unknown]
  - Abdominal pain upper [Recovering/Resolving]
  - Bone disorder [Recovering/Resolving]
  - Hallucination [Recovering/Resolving]
  - Tension headache [Recovering/Resolving]
  - Nausea [Recovered/Resolved]
  - Blood pressure decreased [Recovering/Resolving]
  - Eye swelling [Recovering/Resolving]
  - Visual impairment [Recovering/Resolving]
  - Muscle spasms [Recovering/Resolving]
  - Headache [Recovering/Resolving]
  - Pain [Recovering/Resolving]
  - Anxiety [Recovering/Resolving]
  - Insomnia [Recovering/Resolving]
  - Injection site pain [Recovering/Resolving]

NARRATIVE: CASE EVENT DATE: 20190405
